FAERS Safety Report 12733200 (Version 1)
Quarter: 2016Q3

REPORT INFORMATION
  Report Type: Spontaneous
  Country: US (occurrence: US)
  Receive Date: 20160912
  Receipt Date: 20160912
  Transmission Date: 20161109
  Serious: Yes (Disabling, Other)
  Sender: FDA-Public Use
  Company Number: US-REGENERON PHARMACEUTICALS, INC.-2016-21423

PATIENT

DRUGS (3)
  1. EYLEA [Suspect]
     Active Substance: AFLIBERCEPT
     Indication: NEOVASCULAR AGE-RELATED MACULAR DEGENERATION
     Dosage: UNK UNK, MONTHLY
     Route: 031
     Dates: start: 201606
  2. EYLEA [Suspect]
     Active Substance: AFLIBERCEPT
     Dosage: UNK UNK, MONTHLY
     Route: 031
     Dates: start: 201608, end: 201608
  3. EYLEA [Suspect]
     Active Substance: AFLIBERCEPT
     Dosage: UNK UNK, MONTHLY
     Route: 031
     Dates: start: 201607, end: 201607

REACTIONS (3)
  - Metamorphopsia [Unknown]
  - Visual impairment [Unknown]
  - Blindness [Unknown]
